APPROVED DRUG PRODUCT: VARIBAR HONEY
Active Ingredient: BARIUM SULFATE
Strength: 40%
Dosage Form/Route: SUSPENSION;ORAL
Application: N208143 | Product #007
Applicant: BRACCO DIAGNOSTICS INC
Approved: Mar 26, 2018 | RLD: Yes | RS: Yes | Type: RX